FAERS Safety Report 6985213-7 (Version None)
Quarter: 2010Q3

REPORT INFORMATION
  Report Type: 
  Country: None (occurrence: None)
  Receive Date: 20100913
  Receipt Date: 20100913
  Transmission Date: 20110219
  Serious: No
  Sender: FDA-Public Use
  Company Number: None

PATIENT
  Age: 42 Year
  Sex: Female

DRUGS (3)
  1. FLUCONAZOLE [Suspect]
     Dates: start: 20090212, end: 20090424
  2. FLUCONAZOLE [Suspect]
     Dates: start: 20090429, end: 20090501
  3. VORICONAZOLE [Suspect]
     Dates: start: 20081201, end: 20081201

REACTIONS (9)
  - ABDOMINAL PAIN UPPER [None]
  - ALANINE AMINOTRANSFERASE INCREASED [None]
  - ASPARTATE AMINOTRANSFERASE INCREASED [None]
  - BLOOD ALKALINE PHOSPHATASE INCREASED [None]
  - LIVER INJURY [None]
  - NAUSEA [None]
  - PYREXIA [None]
  - TREATMENT NONCOMPLIANCE [None]
  - VOMITING [None]
